FAERS Safety Report 6565918-2 (Version None)
Quarter: 2010Q1

REPORT INFORMATION
  Report Type: 
  Country: None (occurrence: None)
  Receive Date: 20100129
  Receipt Date: 20100129
  Transmission Date: 20100710
  Serious: Yes (Life-Threatening, Other)
  Sender: FDA-Public Use
  Company Number: None

PATIENT
  Age: 52 Year
  Sex: Female
  Weight: 63.5036 kg

DRUGS (1)
  1. TYLENOL (CAPLET) [Suspect]
     Indication: PAIN
     Dosage: 2 EVERY 4 TO 6 HRS. PO
     Route: 048
     Dates: start: 20091203, end: 20100126

REACTIONS (2)
  - DIARRHOEA HAEMORRHAGIC [None]
  - MUSCLE SPASMS [None]
